APPROVED DRUG PRODUCT: EXJADE
Active Ingredient: DEFERASIROX
Strength: 500MG
Dosage Form/Route: TABLET, FOR SUSPENSION;ORAL
Application: N021882 | Product #003 | TE Code: AB
Applicant: NOVARTIS PHARMACEUTICALS CORP
Approved: Nov 2, 2005 | RLD: Yes | RS: Yes | Type: RX